FAERS Safety Report 17873392 (Version 2)
Quarter: 2020Q2

REPORT INFORMATION
  Report Type: Report from Study
  Country: CZ (occurrence: CZ)
  Receive Date: 20200609
  Receipt Date: 20200609
  Transmission Date: 20200714
  Serious: Yes (Hospitalization)
  Sender: FDA-Public Use
  Company Number: CZ-ROCHE-2609329

PATIENT
  Age: 74 Year
  Sex: Male

DRUGS (16)
  1. VENETOCLAX. [Suspect]
     Active Substance: VENETOCLAX
     Dosage: 735 DAYS
     Route: 048
     Dates: start: 20141229, end: 20170102
  2. VENETOCLAX. [Suspect]
     Active Substance: VENETOCLAX
     Dosage: 6 DAYS
     Route: 048
     Dates: start: 20190920, end: 20190926
  3. VENETOCLAX. [Suspect]
     Active Substance: VENETOCLAX
     Indication: CHRONIC LYMPHOCYTIC LEUKAEMIA
     Dosage: 375 MG/M2 FOR 7 DAYS
     Route: 048
     Dates: start: 20141127, end: 20141204
  4. RITUXIMAB. [Suspect]
     Active Substance: RITUXIMAB
     Indication: CHRONIC LYMPHOCYTIC LEUKAEMIA
     Route: 041
     Dates: start: 20150105, end: 20150105
  5. RITUXIMAB. [Suspect]
     Active Substance: RITUXIMAB
     Dosage: 112 DAYS
     Route: 042
     Dates: start: 20150202, end: 20150525
  6. VENETOCLAX. [Suspect]
     Active Substance: VENETOCLAX
     Dosage: 6 DAYS
     Route: 048
     Dates: start: 20141222, end: 20141228
  7. VENETOCLAX. [Suspect]
     Active Substance: VENETOCLAX
     Dosage: 234 DAYS
     Route: 048
     Dates: start: 20191004, end: 20200525
  8. RITUXIMAB. [Suspect]
     Active Substance: RITUXIMAB
     Route: 042
     Dates: end: 20200228
  9. VENETOCLAX. [Suspect]
     Active Substance: VENETOCLAX
     Dosage: 7 DAYS
     Route: 048
     Dates: start: 20190905, end: 20190912
  10. VENETOCLAX. [Suspect]
     Active Substance: VENETOCLAX
     Dosage: 6 DAYS
     Route: 048
     Dates: start: 20190913, end: 20190919
  11. VENETOCLAX. [Suspect]
     Active Substance: VENETOCLAX
     Dosage: 6 DAYS
     Route: 048
     Dates: start: 20190927, end: 20191003
  12. VENETOCLAX. [Suspect]
     Active Substance: VENETOCLAX
     Dosage: 9 DAYS
     Route: 048
     Dates: start: 20141205, end: 20141214
  13. VENETOCLAX. [Suspect]
     Active Substance: VENETOCLAX
     Dosage: 6 DAYS
     Route: 048
     Dates: start: 20141215, end: 20141221
  14. RITUXIMAB. [Suspect]
     Active Substance: RITUXIMAB
     Route: 042
     Dates: start: 20191011, end: 20191011
  15. AGEN [Concomitant]
     Active Substance: AMLODIPINE BESYLATE
     Route: 065
     Dates: start: 20141203
  16. PRESTARIUM [PERINDOPRIL] [Concomitant]
     Route: 065
     Dates: start: 20141230

REACTIONS (2)
  - Lung disorder [Not Recovered/Not Resolved]
  - Lung neoplasm [Not Recovered/Not Resolved]

NARRATIVE: CASE EVENT DATE: 20200526
